FAERS Safety Report 20077638 (Version 3)
Quarter: 2023Q2

REPORT INFORMATION
  Report Type: Spontaneous
  Country: JP (occurrence: JP)
  Receive Date: 20211116
  Receipt Date: 20230504
  Transmission Date: 20230721
  Serious: Yes (Hospitalization)
  Sender: FDA-Public Use
  Company Number: JP-KYOWAKIRIN-2021AKK000299

PATIENT
  Age: 67 Year
  Sex: Male

DRUGS (29)
  1. PEGFILGRASTIM [Suspect]
     Active Substance: PEGFILGRASTIM
     Indication: Colony stimulating factor therapy
     Dosage: 3.6 MILLIGRAM, QWK
     Route: 058
     Dates: start: 20201221, end: 20221221
  2. FILGRASTIM [Suspect]
     Active Substance: FILGRASTIM
     Indication: Colony stimulating factor therapy
     Dosage: 75 MICROGRAM, 2 TIMES/WK
     Route: 058
     Dates: start: 20201129, end: 20221130
  3. ONCOVIN [Concomitant]
     Active Substance: VINCRISTINE SULFATE
     Indication: Peripheral T-cell lymphoma unspecified
     Dosage: 2 MILLIGRAM
     Route: 041
     Dates: start: 20200917, end: 20200917
  4. ONCOVIN [Concomitant]
     Active Substance: VINCRISTINE SULFATE
     Dosage: 2 MILLIGRAM
     Route: 041
     Dates: start: 20201009, end: 20201009
  5. ONCOVIN [Concomitant]
     Active Substance: VINCRISTINE SULFATE
     Dosage: 2 MILLIGRAM
     Route: 041
     Dates: start: 20201030, end: 20201030
  6. ONCOVIN [Concomitant]
     Active Substance: VINCRISTINE SULFATE
     Dosage: 2 MILLIGRAM
     Route: 041
     Dates: start: 20201120, end: 20201120
  7. ONCOVIN [Concomitant]
     Active Substance: VINCRISTINE SULFATE
     Dosage: 2 MILLIGRAM
     Route: 041
     Dates: start: 20201211, end: 20201211
  8. ONCOVIN [Concomitant]
     Active Substance: VINCRISTINE SULFATE
     Dosage: UNK
     Route: 041
     Dates: start: 20210119, end: 20210119
  9. DOXORUBICIN HYDROCHLORIDE [Concomitant]
     Active Substance: DOXORUBICIN HYDROCHLORIDE
     Indication: Peripheral T-cell lymphoma unspecified
     Dosage: 87.25 MILLIGRAM
     Route: 041
     Dates: start: 20200917, end: 20200917
  10. DOXORUBICIN HYDROCHLORIDE [Concomitant]
     Active Substance: DOXORUBICIN HYDROCHLORIDE
     Dosage: 86.7 MILLIGRAM
     Route: 041
     Dates: start: 20201009, end: 20201009
  11. DOXORUBICIN HYDROCHLORIDE [Concomitant]
     Active Substance: DOXORUBICIN HYDROCHLORIDE
     Dosage: 86.7 MILLIGRAM
     Route: 041
     Dates: start: 20201030, end: 20201030
  12. DOXORUBICIN HYDROCHLORIDE [Concomitant]
     Active Substance: DOXORUBICIN HYDROCHLORIDE
     Dosage: 86.7 MILLIGRAM
     Route: 042
     Dates: start: 20201120, end: 20201120
  13. DOXORUBICIN HYDROCHLORIDE [Concomitant]
     Active Substance: DOXORUBICIN HYDROCHLORIDE
     Dosage: 86.7 MILLIGRAM
     Route: 042
     Dates: start: 20201211, end: 20201211
  14. DOXORUBICIN HYDROCHLORIDE [Concomitant]
     Active Substance: DOXORUBICIN HYDROCHLORIDE
     Dosage: UNK
     Route: 041
     Dates: start: 20210119, end: 20210119
  15. CYCLOPHOSPHAMIDE [Concomitant]
     Active Substance: CYCLOPHOSPHAMIDE
     Indication: Peripheral T-cell lymphoma unspecified
     Dosage: 1309 MG (THE 1ST COURSE)
     Route: 041
     Dates: start: 20200917, end: 20200917
  16. CYCLOPHOSPHAMIDE [Concomitant]
     Active Substance: CYCLOPHOSPHAMIDE
     Dosage: 1301 MG (THE 2ND COURSE)
     Route: 041
     Dates: start: 20201009, end: 20201009
  17. CYCLOPHOSPHAMIDE [Concomitant]
     Active Substance: CYCLOPHOSPHAMIDE
     Dosage: 1301 MG (THE 3RD COURSE)
     Route: 041
     Dates: start: 20201030, end: 20201030
  18. CYCLOPHOSPHAMIDE [Concomitant]
     Active Substance: CYCLOPHOSPHAMIDE
     Dosage: 1301 MG (THE 4TH COURSE)
     Route: 041
     Dates: start: 20201120, end: 20201120
  19. CYCLOPHOSPHAMIDE [Concomitant]
     Active Substance: CYCLOPHOSPHAMIDE
     Dosage: 1301 MG (THE 5TH COURSE)
     Route: 041
     Dates: start: 20201211, end: 20201211
  20. CYCLOPHOSPHAMIDE [Concomitant]
     Active Substance: CYCLOPHOSPHAMIDE
     Dosage: UNK (THE 6TH COURSE)
     Route: 041
     Dates: start: 20210119, end: 20210119
  21. PREDNISOLONE [Concomitant]
     Active Substance: PREDNISOLONE
     Indication: Peripheral T-cell lymphoma unspecified
     Dosage: UNK
     Route: 048
  22. PREDNISOLONE [Concomitant]
     Active Substance: PREDNISOLONE
     Indication: Product used for unknown indication
     Dosage: UNK
     Route: 048
  23. PREDNISOLONE [Concomitant]
     Active Substance: PREDNISOLONE
     Dosage: 1 DOSAGE FORM, QD
     Route: 048
     Dates: start: 20210104
  24. PREDNISOLONE [Concomitant]
     Active Substance: PREDNISOLONE
     Dosage: UNK  *SINGLE
     Route: 042
     Dates: start: 20201120
  25. LEVOFLOXACIN HEMIHYDRATE [Concomitant]
     Active Substance: LEVOFLOXACIN
     Indication: Product used for unknown indication
     Dosage: 1 DOSAGE FORM, QD
     Route: 065
     Dates: start: 20210104
  26. XYZAL [Concomitant]
     Active Substance: LEVOCETIRIZINE DIHYDROCHLORIDE
     Indication: Product used for unknown indication
     Dosage: 1 DF, QD, BEFORE BEDTIME, FOR 9 DAYS
     Route: 065
     Dates: start: 20210104
  27. SULFAMETHOXAZOLE\TRIMETHOPRIM [Concomitant]
     Active Substance: SULFAMETHOXAZOLE\TRIMETHOPRIM
     Indication: Product used for unknown indication
     Dosage: 0.5 DOSAGE FORM, QD
     Route: 065
     Dates: start: 20210104
  28. ALOXI [Concomitant]
     Active Substance: PALONOSETRON HYDROCHLORIDE
     Indication: Product used for unknown indication
     Dosage: UNK
     Route: 042
  29. SODIUM CHLORIDE [Concomitant]
     Active Substance: SODIUM CHLORIDE
     Indication: Product used for unknown indication
     Dosage: UNK
     Route: 065
     Dates: start: 20201120

REACTIONS (1)
  - Arteritis [Recovered/Resolved]

NARRATIVE: CASE EVENT DATE: 20210104
